FAERS Safety Report 22096437 (Version 2)
Quarter: 2023Q2

REPORT INFORMATION
  Report Type: Spontaneous
  Country: US (occurrence: US)
  Receive Date: 20230315
  Receipt Date: 20230509
  Transmission Date: 20230722
  Serious: No
  Sender: FDA-Public Use
  Company Number: US-GLAXOSMITHKLINE-USCH2023010465

PATIENT
  Age: 43 Year
  Sex: Male

DRUGS (1)
  1. ADVIL LIQUI-GELS [Suspect]
     Active Substance: IBUPROFEN
     Indication: Product used for unknown indication
     Dosage: 1 DF

REACTIONS (5)
  - Vomiting [Recovered/Resolved]
  - Illness [Unknown]
  - Pharyngitis streptococcal [Unknown]
  - Drug ineffective [Unknown]
  - Product complaint [Unknown]
